FAERS Safety Report 9038688 (Version 1)
Quarter: 2013Q1

REPORT INFORMATION
  Report Type: Spontaneous
  Country: US (occurrence: US)
  Receive Date: 20130129
  Receipt Date: 20130129
  Transmission Date: 20140127
  Serious: No
  Sender: FDA-Public Use
  Company Number: US-ABBOTT-12P-163-0938937-00

PATIENT
  Sex: Female

DRUGS (18)
  1. HUMIRA 40 MG/ 0.8 ML PRE-FILLED SYRINGE [Suspect]
     Indication: PSORIASIS
     Dates: start: 200902
  2. HUMIRA 40 MG/ 0.8 ML PRE-FILLED SYRINGE [Suspect]
     Indication: PSORIATIC ARTHROPATHY
  3. ACTOS [Concomitant]
     Indication: DIABETES MELLITUS
  4. ALLEGRA [Concomitant]
     Indication: HYPERSENSITIVITY
  5. ALPRAZOLAM [Concomitant]
     Indication: ANXIETY
  6. SIMVASTATIN [Concomitant]
     Indication: HYPERLIPIDAEMIA
  7. FUROSEMIDE [Concomitant]
     Indication: HYPERTENSION
  8. GABAPENTIN [Concomitant]
     Indication: PAIN
  9. IBUPROFEN [Concomitant]
     Indication: PAIN
  10. TRAMADOL [Concomitant]
     Indication: PAIN
  11. HYDROCODONE [Concomitant]
     Indication: PAIN
  12. VENLAXAXINE [Concomitant]
     Indication: PRODUCT USED FOR UNKNOWN INDICATION
  13. OMEPRAZOLE [Concomitant]
     Indication: GASTROOESOPHAGEAL REFLUX DISEASE
  14. ENALAPRIL [Concomitant]
     Indication: HYPERTENSION
  15. BUSPAR [Concomitant]
     Indication: DEPRESSION
  16. LORATADINE [Concomitant]
     Indication: GASTROOESOPHAGEAL REFLUX DISEASE
  17. ZETIA [Concomitant]
     Indication: HYPERLIPIDAEMIA
  18. FISH OIL [Concomitant]
     Indication: SUPPLEMENTATION THERAPY

REACTIONS (1)
  - Drug ineffective [Not Recovered/Not Resolved]
